FAERS Safety Report 13432420 (Version 3)
Quarter: 2017Q3

REPORT INFORMATION
  Report Type: Spontaneous
  Country: US (occurrence: US)
  Receive Date: 20170412
  Receipt Date: 20170913
  Transmission Date: 20171127
  Serious: Yes (Hospitalization, Other)
  Sender: FDA-Public Use
  Company Number: US-JNJFOC-20170331240

PATIENT
  Age: 58 Year
  Sex: Male
  Weight: 167.83 kg

DRUGS (3)
  1. XARELTO [Suspect]
     Active Substance: RIVAROXABAN
     Indication: THROMBOSIS PROPHYLAXIS
     Route: 048
     Dates: start: 20140422, end: 20150327
  2. XARELTO [Suspect]
     Active Substance: RIVAROXABAN
     Indication: ATRIAL FIBRILLATION
     Route: 048
     Dates: start: 20140422, end: 20150327
  3. XARELTO [Suspect]
     Active Substance: RIVAROXABAN
     Indication: CEREBROVASCULAR ACCIDENT PROPHYLAXIS
     Route: 048
     Dates: start: 20140422, end: 20150327

REACTIONS (3)
  - Haematoma [Recovering/Resolving]
  - Haemorrhage [Unknown]
  - Vascular pseudoaneurysm [Recovering/Resolving]

NARRATIVE: CASE EVENT DATE: 20150327
